FAERS Safety Report 4414473-1 (Version None)
Quarter: 2004Q3

REPORT INFORMATION
  Report Type: 
  Country: None (occurrence: None)
  Receive Date: 20040702
  Receipt Date: 20040210
  Transmission Date: 20050211
  Serious: Yes (Disabling)
  Sender: FDA-Public Use
  Company Number: 358705

PATIENT
  Sex: Female

DRUGS (1)
  1. KLONOPIN [Suspect]
     Dosage: 0.25 MG 2 PER DAY ORAL
     Route: 048
     Dates: start: 20030615

REACTIONS (12)
  - ACCIDENT [None]
  - AGITATION [None]
  - AMNESIA [None]
  - BALANCE DISORDER [None]
  - BRADYPHRENIA [None]
  - CHILLS [None]
  - FEELING ABNORMAL [None]
  - HEADACHE [None]
  - LETHARGY [None]
  - LOSS OF CONSCIOUSNESS [None]
  - REFLEXES ABNORMAL [None]
  - ROAD TRAFFIC ACCIDENT [None]
